FAERS Safety Report 8212703-1 (Version None)
Quarter: 2012Q1

REPORT INFORMATION
  Report Type: 
  Country: None (occurrence: None)
  Receive Date: 20120315
  Receipt Date: 20120312
  Transmission Date: 20120608
  Serious: Yes (Other)
  Sender: FDA-Public Use
  Company Number: US-PFIZER INC-2012065117

PATIENT
  Sex: Female
  Weight: 68.027 kg

DRUGS (8)
  1. METOPROLOL [Concomitant]
     Indication: HYPERTENSION
     Dosage: 100 MG, UNK
  2. ZETIA [Concomitant]
     Indication: BLOOD CHOLESTEROL INCREASED
     Dosage: 10 MG, UNK
  3. TRAMADOL [Concomitant]
     Dosage: 50 MG, 2X/DAY
  4. AMBIEN [Concomitant]
     Indication: SLEEP DISORDER
     Dosage: UNK
  5. CHANTIX [Suspect]
     Indication: SMOKING CESSATION THERAPY
     Dosage: 0.5 MG, 1X/DAY
     Route: 048
     Dates: start: 20120226, end: 20120101
  6. CHANTIX [Suspect]
     Dosage: 1 MG, 2X/DAY
     Route: 048
     Dates: start: 20120101
  7. VITAMIN D [Concomitant]
     Indication: LIVER DISORDER
     Dosage: UNK
  8. CELEBREX [Concomitant]
     Dosage: UNK

REACTIONS (3)
  - PALPITATIONS [None]
  - DYSPNOEA [None]
  - INSOMNIA [None]
